FAERS Safety Report 9587598 (Version 2)
Quarter: 2013Q4

REPORT INFORMATION
  Report Type: Spontaneous
  Country: US (occurrence: US)
  Receive Date: 20131003
  Receipt Date: 20131016
  Transmission Date: 20140711
  Serious: Yes (Hospitalization)
  Sender: FDA-Public Use
  Company Number: US-ABBVIE-13P-163-1152381-00

PATIENT
  Age: 66 Year
  Sex: Male

DRUGS (19)
  1. NIASPAN (COATED) [Suspect]
     Indication: PRODUCT USED FOR UNKNOWN INDICATION
  2. ACTOS [Interacting]
     Indication: PRODUCT USED FOR UNKNOWN INDICATION
  3. FUROSEMIDE [Interacting]
     Indication: CARDIAC FAILURE CONGESTIVE
     Route: 048
  4. FUROSEMIDE [Interacting]
     Route: 048
  5. METFORMIN HYDROCHLORIDE [Interacting]
     Indication: PRODUCT USED FOR UNKNOWN INDICATION
  6. PLAVIX [Interacting]
     Indication: PRODUCT USED FOR UNKNOWN INDICATION
  7. GLIPIZIDE [Interacting]
     Indication: PRODUCT USED FOR UNKNOWN INDICATION
  8. NEXIUM [Interacting]
     Indication: PRODUCT USED FOR UNKNOWN INDICATION
  9. DILTIAZEM [Interacting]
     Indication: PRODUCT USED FOR UNKNOWN INDICATION
  10. ENALAPRIL [Interacting]
     Indication: PRODUCT USED FOR UNKNOWN INDICATION
  11. COUMADIN [Interacting]
     Indication: PRODUCT USED FOR UNKNOWN INDICATION
  12. DIGOXIN [Interacting]
     Indication: PRODUCT USED FOR UNKNOWN INDICATION
  13. CRESTOR [Interacting]
     Indication: PRODUCT USED FOR UNKNOWN INDICATION
  14. POTASSIUM W/SODIUM CHLORIDE [Interacting]
     Indication: PRODUCT USED FOR UNKNOWN INDICATION
  15. BAYER ASPIRIN [Interacting]
     Indication: PRODUCT USED FOR UNKNOWN INDICATION
  16. VICTOZA [Interacting]
     Indication: PRODUCT USED FOR UNKNOWN INDICATION
  17. ALLERGY MEDICATION [Interacting]
     Indication: MULTIPLE ALLERGIES
  18. ALLI [Interacting]
     Indication: WEIGHT LOSS DIET
     Route: 048
     Dates: start: 20130912
  19. ALLI [Interacting]
     Route: 048

REACTIONS (10)
  - Fluid retention [Recovered/Resolved]
  - Weight increased [Recovered/Resolved]
  - Urine output decreased [Recovered/Resolved]
  - Pulmonary oedema [Recovered/Resolved]
  - Cardiac failure congestive [Recovered/Resolved]
  - Lung disorder [Unknown]
  - Drug interaction [Unknown]
  - Fluid retention [Not Recovered/Not Resolved]
  - Weight increased [Not Recovered/Not Resolved]
  - Urine output decreased [Not Recovered/Not Resolved]
